FAERS Safety Report 8163838 (Version 4)
Quarter: 2012Q4

REPORT INFORMATION
  Report Type: 
  Country: US (occurrence: US)
  Receive Date: 20110930
  Receipt Date: 20120905
  Transmission Date: 20130627
  Serious: Yes (Hospitalization, Other)
  Sender: FDA-Public Use
  Company Number: US-US-EMD SERONO, INC.-7085180

PATIENT
  Age: 51 None
  Sex: Female

DRUGS (2)
  1. REBIF [Suspect]
     Indication: MULTIPLE SCLEROSIS
     Route: 058
     Dates: start: 20100223
  2. TYLENOL [Concomitant]
     Indication: PREMEDICATION

REACTIONS (12)
  - Paranasal sinus neoplasm [Unknown]
  - Type 2 diabetes mellitus [Not Recovered/Not Resolved]
  - Cholelithiasis [Unknown]
  - Multiple sclerosis relapse [Unknown]
  - Varicose vein [Not Recovered/Not Resolved]
  - Abdominal distension [Not Recovered/Not Resolved]
  - Hepatic enzyme increased [Not Recovered/Not Resolved]
  - Thyroid function test abnormal [Unknown]
  - Influenza like illness [Not Recovered/Not Resolved]
  - Injection site erythema [Not Recovered/Not Resolved]
  - Injection site bruising [Not Recovered/Not Resolved]
  - Injection site pain [Unknown]
